FAERS Safety Report 6958431-1 (Version None)
Quarter: 2010Q3

REPORT INFORMATION
  Report Type: 
  Country: None (occurrence: None)
  Receive Date: 20100831
  Receipt Date: 20100823
  Transmission Date: 20110219
  Serious: Yes (Other)
  Sender: FDA-Public Use
  Company Number: JP-JNJFOC-20100203725

PATIENT
  Sex: Female
  Weight: 44 kg

DRUGS (13)
  1. REMICADE [Suspect]
     Indication: RHEUMATOID ARTHRITIS
     Route: 042
  2. REMICADE [Suspect]
     Route: 042
  3. REMICADE [Suspect]
     Route: 042
  4. REMICADE [Suspect]
     Route: 042
  5. PREDNISOLONE [Suspect]
     Indication: RHEUMATOID ARTHRITIS
     Route: 048
  6. RHEUMATREX [Suspect]
     Indication: RHEUMATOID ARTHRITIS
     Route: 048
  7. BONALON [Concomitant]
     Indication: OSTEOPOROSIS
     Route: 048
  8. ISONIAZID [Concomitant]
  9. FOLIAMIN [Concomitant]
     Indication: PROPHYLAXIS
     Route: 048
  10. PYDOXAL [Concomitant]
     Indication: PROPHYLAXIS
     Route: 048
  11. ISCOTIN [Concomitant]
     Indication: ANTIBIOTIC PROPHYLAXIS
     Route: 048
  12. PREDNISONE [Concomitant]
     Indication: RHEUMATOID ARTHRITIS
  13. CLARITHROMYCIN [Concomitant]

REACTIONS (1)
  - PULMONARY TUBERCULOSIS [None]
